FAERS Safety Report 9880317 (Version 2)
Quarter: 2014Q1

REPORT INFORMATION
  Report Type: Report from Study
  Country: CO (occurrence: CO)
  Receive Date: 20140207
  Receipt Date: 20140307
  Transmission Date: 20141002
  Serious: Yes (Other)
  Sender: FDA-Public Use
  Company Number: CO-ROCHE-1345423

PATIENT
  Sex: Male
  Weight: 47 kg

DRUGS (3)
  1. LUCENTIS [Suspect]
     Indication: MACULAR DEGENERATION
     Route: 050
     Dates: start: 201310
  2. NAPROXEN SODIUM [Concomitant]
  3. LOSARTAN [Concomitant]

REACTIONS (2)
  - Wound infection [Unknown]
  - Neoplasm [Recovering/Resolving]
